FAERS Safety Report 4974285-7 (Version None)
Quarter: 2006Q2

REPORT INFORMATION
  Report Type: 
  Country: None (occurrence: None)
  Receive Date: 20060417
  Receipt Date: 20060407
  Transmission Date: 20061013
  Serious: Yes (Death, Hospitalization)
  Sender: FDA-Public Use
  Company Number: FR-AVENTIS-200611280FR

PATIENT
  Age: 81 Year
  Sex: Male

DRUGS (8)
  1. RIFADIN [Suspect]
     Indication: SKIN INFECTION
     Route: 042
     Dates: start: 20051013, end: 20051025
  2. FUCIDINE CAP [Suspect]
     Indication: SKIN INFECTION
     Route: 042
     Dates: start: 20051013, end: 20051025
  3. NEXIUM [Concomitant]
     Route: 048
     Dates: start: 20030205
  4. DIFFU K [Concomitant]
     Route: 048
  5. DIGOXINE NATIVELLE [Concomitant]
     Route: 048
     Dates: start: 20050215
  6. IKOREL [Concomitant]
     Route: 048
     Dates: start: 20040123
  7. AUGMENTIN '125' [Concomitant]
     Indication: SKIN INFECTION
     Route: 048
     Dates: start: 20050901, end: 20050901
  8. PYOSTACINE [Concomitant]
     Indication: SKIN INFECTION
     Route: 048
     Dates: start: 20050921

REACTIONS (12)
  - ARTHRITIS [None]
  - CACHEXIA [None]
  - CHOLESTASIS [None]
  - DEHYDRATION [None]
  - ESCHAR [None]
  - HYPERBILIRUBINAEMIA [None]
  - JAUNDICE [None]
  - LEG AMPUTATION [None]
  - LIVER FUNCTION TEST ABNORMAL [None]
  - OSTEITIS [None]
  - OVERDOSE [None]
  - SKIN NECROSIS [None]
